FAERS Safety Report 5009525-1 (Version None)
Quarter: 2006Q2

REPORT INFORMATION
  Report Type: 
  Country: None (occurrence: None)
  Receive Date: 20060524
  Receipt Date: 20060221
  Transmission Date: 20061013
  Serious: Yes (Life-Threatening, Hospitalization, Other)
  Sender: FDA-Public Use
  Company Number: PHNU2006DE00999

PATIENT
  Sex: Male
  Weight: 108 kg

DRUGS (4)
  1. CLINDA-SAAR TABLET [Suspect]
     Indication: SKIN INFECTION
     Dosage: UNKNOWN
     Route: 048
     Dates: end: 20060201
  2. LIORESAL [Suspect]
     Indication: PARAPLEGIA
     Route: 048
     Dates: start: 20060201, end: 20060201
  3. LIORESAL [Suspect]
     Dosage: 2 DF, TID
     Route: 048
     Dates: start: 19860101
  4. CIPROBAY [Suspect]
     Indication: CYSTITIS
     Dosage: UNKNOWN
     Route: 048
     Dates: end: 20060201

REACTIONS (9)
  - ANXIETY [None]
  - CYSTITIS [None]
  - DRUG INTERACTION [None]
  - INTUBATION [None]
  - LIFE SUPPORT [None]
  - MUSCLE SPASMS [None]
  - RESPIRATORY ARREST [None]
  - RESPIRATORY PARALYSIS [None]
  - SKIN INFECTION [None]
